FAERS Safety Report 4985878-5 (Version None)
Quarter: 2006Q2

REPORT INFORMATION
  Report Type: 
  Country: None (occurrence: None)
  Receive Date: 20060421
  Receipt Date: 20060412
  Transmission Date: 20061013
  Serious: Yes (Hospitalization)
  Sender: FDA-Public Use
  Company Number: HQWYE798912APR06

PATIENT
  Age: 73 Year
  Sex: Male

DRUGS (10)
  1. CORDARONE [Suspect]
     Dosage: 200 MG 1X PER 1 DAY
     Route: 048
  2. ALLOPURINOL [Suspect]
     Dosage: 300 MG 1X PER 1 DAY
     Route: 048
  3. COUMADIN [Suspect]
     Dosage: SEE IMAGE
     Route: 048
     Dates: end: 20060206
  4. COUMADIN [Suspect]
     Dosage: SEE IMAGE
     Route: 048
     Dates: start: 20060208
  5. PRAVASTATIN [Suspect]
     Dosage: 40 MG 1X PER 1 DAY
     Route: 048
  6. KARDEGIC             (ACETYLSALICYLATE LYSINE, ) [Suspect]
     Dosage: 75 MG 1X PER 1 DAY
     Route: 048
  7. FUROSEMIDE [Concomitant]
  8. AMLODIPINE BESYLATE [Concomitant]
  9. COVERSYL (PERINDOPRIL) [Concomitant]
  10. LANTUS [Concomitant]

REACTIONS (3)
  - DRUG INTERACTION [None]
  - EPISTAXIS [None]
  - INTERNATIONAL NORMALISED RATIO INCREASED [None]
